FAERS Safety Report 21054048 (Version 1)
Quarter: 2022Q3

REPORT INFORMATION
  Report Type: Spontaneous
  Country: US (occurrence: US)
  Receive Date: 20220707
  Receipt Date: 20220707
  Transmission Date: 20221026
  Serious: Yes (Hospitalization, Other)
  Sender: FDA-Public Use
  Company Number: US-TAKEDA-2022TUS045292

PATIENT
  Age: 50 Year
  Sex: Male

DRUGS (2)
  1. EXKIVITY [Suspect]
     Active Substance: MOBOCERTINIB
     Indication: Product used for unknown indication
     Dosage: UNK
     Route: 065
     Dates: start: 20220621
  2. AMIVANTAMAB [Concomitant]
     Active Substance: AMIVANTAMAB
     Dosage: UNK
     Route: 065
     Dates: end: 20220603

REACTIONS (1)
  - Pneumonia [Unknown]
